FAERS Safety Report 16768134 (Version 1)
Quarter: 2019Q3

REPORT INFORMATION
  Report Type: Report from Study
  Country: NL (occurrence: NL)
  Receive Date: 20190903
  Receipt Date: 20190903
  Transmission Date: 20191005
  Serious: Yes (Congenital Anomaly, Other)
  Sender: FDA-Public Use
  Company Number: NL-UCBSA-2019037099

PATIENT

DRUGS (1)
  1. LEVETIRACETAM. [Suspect]
     Active Substance: LEVETIRACETAM
     Indication: EPILEPSY
     Dosage: UNKNOWN DOSE
     Route: 064

REACTIONS (4)
  - Autism spectrum disorder [Unknown]
  - Congenital anomaly [Unknown]
  - Behaviour disorder [Unknown]
  - Maternal exposure during pregnancy [Unknown]
